FAERS Safety Report 7903164-8 (Version None)
Quarter: 2011Q4

REPORT INFORMATION
  Report Type: 
  Country: None (occurrence: None)
  Receive Date: 20111108
  Receipt Date: 20111108
  Transmission Date: 20120403
  Serious: Yes (Death)
  Sender: FDA-Public Use
  Company Number: None

PATIENT
  Age: 48 Year
  Sex: Female

DRUGS (13)
  1. CELEXA [Concomitant]
  2. FLOLAN [Concomitant]
  3. KLONOPIN [Concomitant]
  4. FAMOTIDINE [Concomitant]
  5. PRED [Concomitant]
  6. POTASSIUM CHLORIDE [Concomitant]
  7. SIMVASTATIN [Concomitant]
  8. LETAIRIS [Suspect]
     Indication: PULMONARY HYPERTENSION
     Dosage: 5 MG, DAILY, ORALLY
     Route: 048
     Dates: start: 20071001, end: 20111101
  9. DIGOXIN [Concomitant]
  10. LASIX [Concomitant]
  11. METRONIDAZOLE [Concomitant]
  12. HYDROMORPHONE HCL [Concomitant]
  13. FENTANYL [Concomitant]

REACTIONS (3)
  - ANXIETY [None]
  - DYSPNOEA [None]
  - AGITATION [None]
